FAERS Safety Report 4659016-2 (Version None)
Quarter: 2005Q2

REPORT INFORMATION
  Report Type: 
  Country: None (occurrence: None)
  Receive Date: 20050511
  Receipt Date: 20050506
  Transmission Date: 20051028
  Serious: Yes (Other)
  Sender: FDA-Public Use
  Company Number: US-GLAXOSMITHKLINE-A0557560A

PATIENT
  Age: 57 Year
  Sex: Female

DRUGS (2)
  1. BECONASE [Suspect]
     Dosage: 1SPR AS REQUIRED
     Route: 045
     Dates: start: 20050501, end: 20050501
  2. NO CONCURRENT MEDICATION [Concomitant]

REACTIONS (7)
  - ASTHMA [None]
  - DISORIENTATION [None]
  - DIZZINESS [None]
  - HYPERSENSITIVITY [None]
  - INSOMNIA [None]
  - NAUSEA [None]
  - PHARMACEUTICAL PRODUCT COMPLAINT [None]
